FAERS Safety Report 21515029 (Version 1)
Quarter: 2022Q4

REPORT INFORMATION
  Report Type: Spontaneous
  Country: US (occurrence: US)
  Receive Date: 20221027
  Receipt Date: 20221027
  Transmission Date: 20230113
  Serious: No
  Sender: FDA-Public Use
  Company Number: US-UPSHER-SMITH LABORATORIES, LLC-2022USL00434

PATIENT
  Sex: Female

DRUGS (5)
  1. JANTOVEN [Suspect]
     Active Substance: WARFARIN SODIUM
     Indication: Cardiac pacemaker insertion
     Dosage: 2.5 MG, 1X/DAY
     Route: 048
     Dates: start: 2022
  2. OLMESARTAN [Concomitant]
     Active Substance: OLMESARTAN
  3. UNSPECIFIED INGREDIENT [Concomitant]
     Active Substance: UNSPECIFIED INGREDIENT
  4. SYNTHROID [Concomitant]
     Active Substance: LEVOTHYROXINE SODIUM
  5. UNSPECIFIED VITAMINS FROM WHITTAKER INSTITUTE [Concomitant]

REACTIONS (2)
  - Reaction to excipient [Not Recovered/Not Resolved]
  - Rash pruritic [Not Recovered/Not Resolved]

NARRATIVE: CASE EVENT DATE: 20220101
